FAERS Safety Report 8943291 (Version 1)
Quarter: 2012Q4

REPORT INFORMATION
  Report Type: Report from Study
  Country: US (occurrence: US)
  Receive Date: 20121204
  Receipt Date: 20121204
  Transmission Date: 20130627
  Serious: Yes (Other)
  Sender: FDA-Public Use
  Company Number: US-ELI_LILLY_AND_COMPANY-US201208007480

PATIENT
  Age: 50 Year
  Sex: Male
  Weight: 71.66 kg

DRUGS (35)
  1. OLANZAPINE LONG-ACTING IM [Suspect]
     Dosage: 210 mg, unknown
     Route: 030
     Dates: start: 20100420
  2. OLANZAPINE LONG-ACTING IM [Suspect]
     Dosage: 210 mg, unknown
     Route: 030
     Dates: start: 20100518
  3. OLANZAPINE LONG-ACTING IM [Suspect]
     Dosage: 210 mg, unknown
     Route: 030
     Dates: start: 20100615
  4. OLANZAPINE LONG-ACTING IM [Suspect]
     Dosage: 210 mg, unknown
     Route: 030
     Dates: start: 20100701
  5. OLANZAPINE LONG-ACTING IM [Suspect]
     Dosage: 210 mg, unknown
     Route: 030
     Dates: start: 20100719
  6. OLANZAPINE LONG-ACTING IM [Suspect]
     Dosage: 210 mg, unknown
     Route: 030
     Dates: start: 20100811
  7. OLANZAPINE LONG-ACTING IM [Suspect]
     Dosage: 210 mg, unknown
     Route: 030
     Dates: start: 20100825
  8. OLANZAPINE LONG-ACTING IM [Suspect]
     Dosage: 210 mg, unknown
     Route: 030
     Dates: start: 20100908
  9. OLANZAPINE LONG-ACTING IM [Suspect]
     Dosage: 210 mg, unknown
     Route: 030
     Dates: start: 20101006
  10. OLANZAPINE LONG-ACTING IM [Suspect]
     Dosage: 210 mg, unknown
     Route: 030
     Dates: start: 20101110
  11. OLANZAPINE LONG-ACTING IM [Suspect]
     Dosage: 210 mg, unknown
     Route: 030
     Dates: start: 20101208
  12. OLANZAPINE LONG-ACTING IM [Suspect]
     Dosage: 405 mg, unknown
     Route: 030
     Dates: start: 20110112
  13. OLANZAPINE LONG-ACTING IM [Suspect]
     Dosage: 405 mg, unknown
     Route: 030
     Dates: start: 20110202
  14. OLANZAPINE LONG-ACTING IM [Suspect]
     Dosage: 405 mg, unknown
     Route: 030
     Dates: start: 20110303
  15. OLANZAPINE LONG-ACTING IM [Suspect]
     Dosage: 405 mg, unknown
     Route: 030
     Dates: start: 20110406
  16. OLANZAPINE LONG-ACTING IM [Suspect]
     Dosage: 405 mg, unknown
     Route: 030
     Dates: start: 20110504
  17. OLANZAPINE LONG-ACTING IM [Suspect]
     Dosage: 405 mg, unknown
     Route: 030
     Dates: start: 20110608
  18. OLANZAPINE LONG-ACTING IM [Suspect]
     Dosage: 405 mg, unknown
     Route: 030
     Dates: start: 20110708
  19. OLANZAPINE LONG-ACTING IM [Suspect]
     Dosage: 405 mg, unknown
     Route: 030
     Dates: start: 20110810
  20. OLANZAPINE LONG-ACTING IM [Suspect]
     Dosage: 405 mg, unknown
     Route: 030
     Dates: start: 20110907
  21. OLANZAPINE LONG-ACTING IM [Suspect]
     Dosage: 405 mg, unknown
     Route: 030
     Dates: start: 20111005
  22. OLANZAPINE LONG-ACTING IM [Suspect]
     Dosage: 405 mg, unknown
     Route: 030
     Dates: start: 20111102
  23. OLANZAPINE LONG-ACTING IM [Suspect]
     Dosage: 405 mg, unknown
     Route: 030
     Dates: start: 20111130
  24. OLANZAPINE LONG-ACTING IM [Suspect]
     Dosage: 405 mg, unknown
     Route: 030
     Dates: start: 20111228
  25. OLANZAPINE LONG-ACTING IM [Suspect]
     Dosage: 405 mg, unknown
     Route: 030
     Dates: start: 20120125
  26. OLANZAPINE LONG-ACTING IM [Suspect]
     Dosage: 405 mg, unknown
     Route: 030
     Dates: start: 20120222
  27. OLANZAPINE LONG-ACTING IM [Suspect]
     Dosage: 405 mg, unknown
     Route: 030
     Dates: start: 20120321
  28. OLANZAPINE LONG-ACTING IM [Suspect]
     Dosage: 405 mg, unknown
     Route: 030
     Dates: start: 20120425
  29. OLANZAPINE LONG-ACTING IM [Suspect]
     Dosage: 405 mg, unknown
     Route: 030
     Dates: start: 20120523
  30. OLANZAPINE LONG-ACTING IM [Suspect]
     Dosage: 405 mg, unknown
     Route: 030
     Dates: start: 20120627
  31. OLANZAPINE LONG-ACTING IM [Suspect]
     Dosage: 405 mg, unknown
     Route: 030
     Dates: start: 20120725
  32. OLANZAPINE LONG-ACTING IM [Suspect]
     Dosage: 405 mg, unknown
     Route: 030
     Dates: start: 20120822, end: 20120822
  33. DESYREL [Concomitant]
     Indication: SLEEP DISORDER
     Dosage: 100 mg, UNK
     Dates: start: 2010
  34. DEPAKOTE [Concomitant]
     Indication: BIPOLAR DISORDER
     Dosage: 500 mg, UNK
     Dates: start: 201202
  35. NAVANE [Concomitant]
     Indication: SCHIZOPHRENIA
     Dosage: 10 mg, UNK
     Dates: start: 201202

REACTIONS (7)
  - Confusional state [Recovered/Resolved]
  - Convulsion [Recovered/Resolved]
  - Delirium [Recovered/Resolved]
  - Disorientation [Recovered/Resolved]
  - Depressed level of consciousness [Recovered/Resolved]
  - Sedation [Recovered/Resolved]
  - Asthenia [Recovered/Resolved]
